FAERS Safety Report 6231844-1 (Version None)
Quarter: 2009Q2

REPORT INFORMATION
  Report Type: 
  Country: None (occurrence: None)
  Receive Date: 20090612
  Receipt Date: 20090612
  Transmission Date: 20091009
  Serious: No
  Sender: FDA-Public Use
  Company Number: None

PATIENT
  Age: 79 Year
  Sex: Female
  Weight: 62 kg

DRUGS (13)
  1. WARFARIN SODIUM [Suspect]
     Indication: CEREBROVASCULAR ACCIDENT
     Dosage: 5, 7.5, 4 MG 1 TIME PO
     Route: 048
     Dates: start: 20090211, end: 20090213
  2. PLAVIX [Suspect]
     Dosage: 75 MG QD PO
     Route: 048
     Dates: start: 20090211, end: 20090214
  3. HUMALOG MIX 75/25 [Concomitant]
  4. ATENOLOL [Concomitant]
  5. CLARINEX [Concomitant]
  6. VASOTEC [Concomitant]
  7. COUMADIN [Concomitant]
  8. TYLENOL (CAPLET) [Concomitant]
  9. ZOLOFT [Concomitant]
  10. PLAVIX [Concomitant]
  11. DIGOXIN [Concomitant]
  12. ZOCOR [Concomitant]
  13. PROTONIX [Concomitant]

REACTIONS (2)
  - HAEMORRHAGE INTRACRANIAL [None]
  - RESPIRATORY FAILURE [None]
